FAERS Safety Report 5501173-X (Version None)
Quarter: 2007Q4

REPORT INFORMATION
  Report Type: 
  Country: None (occurrence: None)
  Receive Date: 20071029
  Receipt Date: 20071005
  Transmission Date: 20080405
  Serious: No
  Sender: FDA-Public Use
  Company Number: US-BOEHRINGER INGELHEIM PHARMACEUTICALS, INC.-2007-BP-22269BP

PATIENT
  Sex: Female

DRUGS (2)
  1. SPIRIVA [Suspect]
     Indication: PNEUMONIA
     Route: 055
     Dates: start: 20070801
  2. SYMBICORT [Suspect]
     Indication: PNEUMONIA
     Dates: start: 20070801

REACTIONS (2)
  - INCREASED APPETITE [None]
  - INSOMNIA [None]
